FAERS Safety Report 19593124 (Version 1)
Quarter: 2021Q3

REPORT INFORMATION
  Report Type: Spontaneous
  Country: US (occurrence: US)
  Receive Date: 20210721
  Receipt Date: 20210721
  Transmission Date: 20211014
  Serious: Yes (Life-Threatening, Disabling, Other)
  Sender: FDA-Public Use
  Company Number: None

PATIENT
  Age: 57 Year
  Sex: Female
  Weight: 106.59 kg

DRUGS (1)
  1. LISINOPRIL HCTZ 20MG [Suspect]
     Active Substance: HYDROCHLOROTHIAZIDE\LISINOPRIL
     Indication: HYPERTENSION
     Route: 048
     Dates: start: 20141214, end: 20160816

REACTIONS (7)
  - Mobility decreased [None]
  - Visual impairment [None]
  - Speech disorder [None]
  - Limb discomfort [None]
  - Faeces discoloured [None]
  - Gastrointestinal disorder [None]
  - Brain injury [None]

NARRATIVE: CASE EVENT DATE: 20170731
